FAERS Safety Report 4443555-3 (Version None)
Quarter: 2004Q3

REPORT INFORMATION
  Report Type: 
  Country: None (occurrence: None)
  Receive Date: 20040901
  Receipt Date: 20040813
  Transmission Date: 20050211
  Serious: Yes (Other)
  Sender: FDA-Public Use
  Company Number: B0342642A

PATIENT
  Age: 16 Year
  Sex: Female

DRUGS (3)
  1. PAXIL [Suspect]
     Indication: DEPRESSION
  2. QUETIAPINE (FORMULATION UNKNOWN) (QUETIAPINE) [Suspect]
     Indication: SCHIZOPHRENIA
     Dosage: VARIABLE DOSE / ORAL
     Route: 048
  3. NIZATIDINE [Suspect]
     Indication: WEIGHT INCREASED
     Dosage: VARIABLE DOSE / ORAL
     Route: 048

REACTIONS (3)
  - DRUG INTERACTION INHIBITION [None]
  - EXTRAPYRAMIDAL DISORDER [None]
  - PARKINSONISM [None]
